FAERS Safety Report 10965709 (Version 1)
Quarter: 2015Q1

REPORT INFORMATION
  Report Type: Spontaneous
  Country: US (occurrence: None)
  Receive Date: 20150327
  Receipt Date: 20150327
  Transmission Date: 20150721
  Serious: No
  Sender: FDA-Public Use
  Company Number: None

PATIENT
  Age: 64 Year
  Sex: Male

DRUGS (6)
  1. LISINOPRIL. [Concomitant]
     Active Substance: LISINOPRIL
  2. ZOCOR [Concomitant]
     Active Substance: SIMVASTATIN
  3. PRILOSEC [Concomitant]
     Active Substance: OMEPRAZOLE MAGNESIUM
  4. OXYCODONE [Concomitant]
     Active Substance: OXYCODONE
  5. ASA [Concomitant]
     Active Substance: ASPIRIN
  6. ZYTIGA [Suspect]
     Active Substance: ABIRATERONE ACETATE
     Indication: PROSTATE CANCER
     Dosage: 1000 MG (4 TABE)
     Route: 048
     Dates: start: 20150120, end: 20150309

REACTIONS (6)
  - Yellow skin [None]
  - Diarrhoea [None]
  - Nausea [None]
  - Hypersomnia [None]
  - Chills [None]
  - Lethargy [None]

NARRATIVE: CASE EVENT DATE: 20150325
